FAERS Safety Report 9726049 (Version 2)
Quarter: 2013Q4

REPORT INFORMATION
  Report Type: Spontaneous
  Country: GB (occurrence: GB)
  Receive Date: 20131203
  Receipt Date: 20131206
  Transmission Date: 20140711
  Serious: Yes (Death)
  Sender: FDA-Public Use
  Company Number: GB-B.I. PHARMACEUTICALS,INC./RIDGEFIELD-2013-BI-40060UK

PATIENT
  Age: 85 Year
  Sex: Female
  Weight: 52 kg

DRUGS (9)
  1. PRADAXA [Suspect]
     Indication: CEREBROVASCULAR ACCIDENT PROPHYLAXIS
  2. PRADAXA [Suspect]
     Indication: ATRIAL FIBRILLATION
     Dosage: 110 MG
     Dates: start: 20130510
  3. ADCAL [Concomitant]
     Route: 048
  4. SIMVASTATIN [Concomitant]
     Dosage: 40 MG
     Route: 048
  5. BUMETANIDE [Concomitant]
     Dosage: 1 MG
     Route: 048
  6. CO-CODAMOL [Concomitant]
  7. DIGOXIN [Concomitant]
     Dosage: 187.5 MCG
     Route: 048
  8. PERINDOPRIL [Concomitant]
     Dosage: 2 MG
     Route: 048
  9. SPIRONOLACTONE [Concomitant]
     Dosage: 25 MG
     Route: 048

REACTIONS (1)
  - Upper gastrointestinal haemorrhage [Fatal]
